FAERS Safety Report 17198118 (Version 4)
Quarter: 2020Q1

REPORT INFORMATION
  Report Type: Spontaneous
  Country: JP (occurrence: JP)
  Receive Date: 20191225
  Receipt Date: 20200309
  Transmission Date: 20200409
  Serious: Yes (Death, Hospitalization, Disabling)
  Sender: FDA-Public Use
  Company Number: JP-ASTRAZENECA-2019SF86788

PATIENT
  Age: 71 Year
  Sex: Male
  Weight: 57 kg

DRUGS (5)
  1. TAGRISSO [Suspect]
     Active Substance: OSIMERTINIB
     Indication: NON-SMALL CELL LUNG CANCER
     Route: 048
     Dates: start: 20190604, end: 20191126
  2. ASPIRIN. [Suspect]
     Active Substance: ASPIRIN
     Indication: THROMBOPHLEBITIS MIGRANS
     Dosage: DOSE UNKNOWN
     Route: 048
     Dates: start: 20191206, end: 20191213
  3. HIRUDOID [Concomitant]
     Active Substance: GLYCOSAMINOGLYCANS
     Indication: PARONYCHIA
     Route: 062
     Dates: start: 20191024, end: 20191127
  4. MINOCYCLINE HYDROCHLORIDE. [Concomitant]
     Active Substance: MINOCYCLINE HYDROCHLORIDE
     Indication: PARONYCHIA
     Route: 048
     Dates: start: 20191024, end: 20191127
  5. ANTEBATE:OINTMENT [Concomitant]
     Indication: PARONYCHIA
     Route: 062
     Dates: start: 20191024, end: 20191127

REACTIONS (7)
  - Haematochezia [Fatal]
  - Rectal ulcer haemorrhage [Fatal]
  - Pneumonia aspiration [Recovering/Resolving]
  - Thrombophlebitis migrans [Not Recovered/Not Resolved]
  - Anaemia [Fatal]
  - Shock haemorrhagic [Fatal]
  - Interstitial lung disease [Recovering/Resolving]

NARRATIVE: CASE EVENT DATE: 20191126
